FAERS Safety Report 11142522 (Version 1)
Quarter: 2015Q2

REPORT INFORMATION
  Report Type: Spontaneous
  Country: US (occurrence: US)
  Receive Date: 20150527
  Receipt Date: 20150527
  Transmission Date: 20150821
  Serious: No
  Sender: FDA-Public Use
  Company Number: US-009507513-1505USA001764

PATIENT
  Age: 80 Year
  Sex: Male

DRUGS (6)
  1. SPIRONOLACTONE. [Concomitant]
     Active Substance: SPIRONOLACTONE
  2. ZETIA [Suspect]
     Active Substance: EZETIMIBE
     Indication: HYPERCHOLESTEROLAEMIA
     Dosage: 10 MG, ONCE DAILY
     Route: 048
     Dates: start: 2006, end: 20150425
  3. LISINOPRIL. [Concomitant]
     Active Substance: LISINOPRIL
  4. LIPITOR [Interacting]
     Active Substance: ATORVASTATIN CALCIUM
     Dosage: UNK
     Dates: start: 1993, end: 20150425
  5. ATENOLOL. [Concomitant]
     Active Substance: ATENOLOL
  6. ASPIRIN. [Concomitant]
     Active Substance: ASPIRIN

REACTIONS (5)
  - Drug interaction [Unknown]
  - Blood alkaline phosphatase increased [Unknown]
  - Aspartate aminotransferase increased [Unknown]
  - Gamma-glutamyltransferase abnormal [Unknown]
  - Blood sodium increased [Unknown]

NARRATIVE: CASE EVENT DATE: 2006
